FAERS Safety Report 7650694-2 (Version None)
Quarter: 2011Q3

REPORT INFORMATION
  Report Type: 
  Country: None (occurrence: None)
  Receive Date: 20110802
  Receipt Date: 20110720
  Transmission Date: 20111222
  Serious: Yes (Other)
  Sender: FDA-Public Use
  Company Number: US-ASTRAZENECA-2008UW24551

PATIENT
  Age: 43 Year
  Sex: Female
  Weight: 106.1 kg

DRUGS (11)
  1. RISPERDAL [Concomitant]
     Dates: start: 20000525, end: 20001108
  2. TRAZODONE HYDROCHLORIDE [Concomitant]
     Dates: start: 20000305, end: 20011011
  3. PROPULSID [Concomitant]
     Dates: start: 20000320
  4. PRILOSEC [Concomitant]
     Dates: start: 20000320
  5. ZOLOFT [Concomitant]
     Dates: start: 20000321
  6. METOCLOPRAMIDE [Concomitant]
     Dates: start: 20000427
  7. HALDOL [Concomitant]
     Dates: start: 20040101
  8. REBETRON [Concomitant]
     Dates: start: 20000321
  9. SEROQUEL [Suspect]
     Indication: SCHIZOPHRENIA
     Dosage: 100 TO 200 MG
     Route: 048
     Dates: start: 20000117
  10. ZYPREXA [Concomitant]
     Dates: start: 20010930, end: 20011011
  11. HYDROCODONE [Concomitant]
     Dosage: 5/500 MG
     Dates: start: 20061104

REACTIONS (9)
  - DERMAL CYST [None]
  - TYPE 2 DIABETES MELLITUS [None]
  - DIABETIC NEUROPATHY [None]
  - CHEST PAIN [None]
  - OSTEOARTHRITIS [None]
  - CARPAL TUNNEL SYNDROME [None]
  - GASTRIC DISORDER [None]
  - REPRODUCTIVE TRACT DISORDER [None]
  - PNEUMONIA [None]
